FAERS Safety Report 10021547 (Version 1)
Quarter: 2014Q1

REPORT INFORMATION
  Report Type: Report from Study
  Country: JP (occurrence: JP)
  Receive Date: 20140319
  Receipt Date: 20140319
  Transmission Date: 20141002
  Serious: Yes (Hospitalization)
  Sender: FDA-Public Use
  Company Number: JP-SA-2014SA032508

PATIENT
  Age: 54 Year
  Sex: Male
  Weight: 61.8 kg

DRUGS (5)
  1. THYMOGLOBULINE [Suspect]
     Indication: BONE MARROW CONDITIONING REGIMEN
     Route: 042
     Dates: start: 20130911, end: 20130911
  2. FLUDARA [Concomitant]
     Indication: APLASTIC ANAEMIA
     Dates: start: 20130913, end: 20130916
  3. ENDOXAN [Concomitant]
     Indication: APLASTIC ANAEMIA
     Dates: start: 20130913, end: 20130916
  4. PROGRAF [Concomitant]
     Indication: PROPHYLAXIS AGAINST GRAFT VERSUS HOST DISEASE
     Dates: start: 20130918
  5. NEUTROGIN [Concomitant]
     Indication: APLASTIC ANAEMIA
     Dates: start: 20130920, end: 20131015

REACTIONS (4)
  - Hepatic function abnormal [Recovering/Resolving]
  - Pyrexia [Recovered/Resolved]
  - Febrile neutropenia [Recovered/Resolved]
  - Candida sepsis [Recovering/Resolving]
